FAERS Safety Report 6419412-X (Version None)
Quarter: 2009Q4

REPORT INFORMATION
  Report Type: 
  Country: None (occurrence: None)
  Receive Date: 20091013
  Receipt Date: 20090327
  Transmission Date: 20100525
  Serious: Yes (Hospitalization)
  Sender: FDA-Public Use
  Company Number: 1000005454

PATIENT
  Age: 60 Year
  Sex: Male

DRUGS (2)
  1. LEXAPRO [Suspect]
     Indication: DEPRESSION
     Dosage: 10 MG (10 MG, 1 IN 1 D), 20 MG (20 MG, 1 IN 1 D)
     Dates: start: 20080101, end: 20090101
  2. LEXAPRO [Suspect]
     Indication: DEPRESSION
     Dosage: 10 MG (10 MG, 1 IN 1 D), 20 MG (20 MG, 1 IN 1 D)
     Dates: start: 20090101

REACTIONS (2)
  - BLOOD SODIUM DECREASED [None]
  - URINARY TRACT INFECTION [None]
